FAERS Safety Report 8777937 (Version 4)
Quarter: 2014Q4

REPORT INFORMATION
  Report Type: Report from Study
  Country: DE (occurrence: DE)
  Receive Date: 20120911
  Receipt Date: 20141113
  Transmission Date: 20150529
  Serious: Yes (Hospitalization, Other)
  Sender: FDA-Public Use
  Company Number: DE-ASTELLAS-2012US007677

PATIENT
  Age: 58 Year
  Sex: Male
  Weight: 55 kg

DRUGS (6)
  1. ERLOTINIB [Suspect]
     Active Substance: ERLOTINIB
     Indication: PANCREATIC CARCINOMA METASTATIC
     Route: 048
     Dates: start: 20120529, end: 20120830
  2. CERNEVIT [Suspect]
     Active Substance: VITAMINS
     Indication: MALNUTRITION
     Route: 042
     Dates: start: 20120713, end: 20120721
  3. GEMCITABINE [Suspect]
     Active Substance: GEMCITABINE\GEMCITABINE HYDROCHLORIDE
     Indication: PANCREATIC CARCINOMA METASTATIC
     Dosage: 1000 MG/M2, WEEKLY, DAY 1, 8, 15
     Route: 042
     Dates: start: 20120529, end: 20120718
  4. ADDEL N                            /01412701/ [Suspect]
     Active Substance: CHROMIC CATION\CUPRIC CATION\FERROUS CATION\FLUORIDE ION\IODIDE ION\MANGANESE CATION (2+)\SODIUM SELENIDE\ZINC CATION
     Indication: MALNUTRITION
     Route: 042
     Dates: start: 20120713, end: 20120721
  5. ERLOTINIB [Suspect]
     Active Substance: ERLOTINIB
     Dosage: 100 MG, ONCE DAILY
     Route: 048
     Dates: start: 20120905
  6. GEMCITABINE [Suspect]
     Active Substance: GEMCITABINE\GEMCITABINE HYDROCHLORIDE
     Dosage: 1000 MG/M2, WAS GIVEN ON DAY 1,8 AND 15
     Route: 042
     Dates: start: 20120529, end: 20120718

REACTIONS (5)
  - Device related infection [Recovered/Resolved]
  - Endophthalmitis [Recovered/Resolved]
  - Body temperature increased [Not Recovered/Not Resolved]
  - Neutrophil count decreased [Unknown]
  - White blood cell count decreased [Unknown]

NARRATIVE: CASE EVENT DATE: 20120718
